FAERS Safety Report 4889829-3 (Version None)
Quarter: 2006Q1

REPORT INFORMATION
  Report Type: 
  Country: None (occurrence: None)
  Receive Date: 20060124
  Receipt Date: 20051005
  Transmission Date: 20060701
  Serious: Yes (Hospitalization)
  Sender: FDA-Public Use
  Company Number: US-MERCK-0510USA03455

PATIENT
  Age: 75 Year
  Sex: Female
  Weight: 81 kg

DRUGS (8)
  1. VIOXX [Suspect]
     Indication: ARTHRITIS
     Route: 048
     Dates: start: 20030103
  2. ATENOLOL [Concomitant]
     Route: 065
  3. [THERAPY UNSPECIFIED] [Concomitant]
     Route: 065
  4. EVISTA [Concomitant]
     Route: 065
  5. IMDUR [Concomitant]
     Route: 065
  6. BIAXIN [Concomitant]
     Route: 065
  7. ZESTORETIC [Concomitant]
     Route: 065
  8. CELEBREX [Concomitant]
     Route: 065

REACTIONS (3)
  - FEMUR FRACTURE [None]
  - MYOCARDIAL INFARCTION [None]
  - ROAD TRAFFIC ACCIDENT [None]
